FAERS Safety Report 10164755 (Version 1)
Quarter: 2014Q2

REPORT INFORMATION
  Report Type: Spontaneous
  Country: US (occurrence: US)
  Receive Date: 20140510
  Receipt Date: 20140510
  Transmission Date: 20141212
  Serious: No
  Sender: FDA-Public Use
  Company Number: US-BRISTOL-MYERS SQUIBB COMPANY-19606334

PATIENT
  Age: 46 Year
  Sex: Male
  Weight: 111.56 kg

DRUGS (8)
  1. BYETTA [Suspect]
     Indication: TYPE 2 DIABETES MELLITUS
     Dates: start: 201307
  2. BYDUREON [Suspect]
  3. METFORMIN [Concomitant]
  4. SYNTHROID [Concomitant]
  5. L-THYROXINE [Concomitant]
  6. LISINOPRIL [Concomitant]
  7. SIMVASTATIN [Concomitant]
  8. GLUCERNA [Concomitant]

REACTIONS (2)
  - Drug ineffective [Recovered/Resolved]
  - Weight decreased [Recovered/Resolved]
